FAERS Safety Report 7582448-X (Version None)
Quarter: 2011Q2

REPORT INFORMATION
  Report Type: 
  Country: None (occurrence: None)
  Receive Date: 20110630
  Receipt Date: 20110623
  Transmission Date: 20111010
  Serious: No
  Sender: FDA-Public Use
  Company Number: US-PFIZER INC-2011114647

PATIENT
  Sex: Female
  Weight: 70.3 kg

DRUGS (3)
  1. PREMARIN [Suspect]
     Indication: OESTROGEN REPLACEMENT THERAPY
     Dosage: 0.625 MG, 1X/DAY
  2. PREMARIN [Suspect]
     Indication: HOT FLUSH
     Dosage: 0.3 MG, ALTERNATE DAY
     Dates: end: 20110622
  3. PREMARIN [Suspect]
     Indication: VULVOVAGINAL DRYNESS
     Dosage: 0.3 MG, 1X/DAY

REACTIONS (7)
  - OEDEMA PERIPHERAL [None]
  - HEADACHE [None]
  - HOT FLUSH [None]
  - IRRITABILITY [None]
  - WEIGHT INCREASED [None]
  - RESTLESS LEGS SYNDROME [None]
  - INSOMNIA [None]
